FAERS Safety Report 17305946 (Version 1)
Quarter: 2020Q1

REPORT INFORMATION
  Report Type: Spontaneous
  Country: IE (occurrence: IE)
  Receive Date: 20200123
  Receipt Date: 20200123
  Transmission Date: 20200409
  Serious: Yes (Other)
  Sender: FDA-Public Use
  Company Number: IE-MYLANLABS-2020M1006795

PATIENT
  Age: 56 Year
  Sex: Female

DRUGS (1)
  1. LIPANTIL SUPRA [Suspect]
     Active Substance: FENOFIBRATE
     Indication: HYPERCHOLESTEROLAEMIA
     Dosage: 145 MILLIGRAM
     Route: 048

REACTIONS (3)
  - Dizziness [Unknown]
  - Myalgia [Unknown]
  - Influenza like illness [Unknown]

NARRATIVE: CASE EVENT DATE: 20191021
